FAERS Safety Report 4381627-2 (Version None)
Quarter: 2004Q2

REPORT INFORMATION
  Report Type: 
  Country: None (occurrence: None)
  Receive Date: 20040615
  Receipt Date: 20040525
  Transmission Date: 20050107
  Serious: Yes (Other)
  Sender: FDA-Public Use
  Company Number: B0334619A

PATIENT
  Age: 20 Year
  Sex: Female
  Weight: 69.8539 kg

DRUGS (4)
  1. NICODERM CQ [Suspect]
     Indication: EX-SMOKER
     Dosage: 21 MG/PER DAY/TRANSDERMAL
     Route: 062
     Dates: start: 20040319, end: 20040430
  2. PROPRANOLOL HDYROCHLORIDE (FORMULATION UNKNOWN) (PROPRANOLOL HYDROCHLO [Suspect]
     Indication: MIGRAINE
     Dosage: 40 MG/TWICE PER DAY/ORAL
     Route: 048
     Dates: start: 20040201
  3. ACETAMINOPHEN [Concomitant]
  4. MEDROXYPROGESTERONE [Concomitant]

REACTIONS (5)
  - AGITATION [None]
  - ANXIETY [None]
  - CONDITION AGGRAVATED [None]
  - DRUG INTERACTION [None]
  - OBSESSIVE-COMPULSIVE DISORDER [None]
